FAERS Safety Report 22214775 (Version 1)
Quarter: 2023Q2

REPORT INFORMATION
  Report Type: Report from Study
  Country: EG (occurrence: EG)
  Receive Date: 20230415
  Receipt Date: 20230415
  Transmission Date: 20230721
  Serious: Yes (Other)
  Sender: FDA-Public Use
  Company Number: EG-002147023-NVSC2023EG084801

PATIENT
  Age: 73 Year
  Sex: Female

DRUGS (10)
  1. ENTRESTO [Suspect]
     Active Substance: SACUBITRIL\VALSARTAN
     Indication: Product used for unknown indication
     Dosage: 0.5 DOSAGE FORM, QD (STOOPED 3 DAYS AGO)
     Route: 048
     Dates: start: 20191124
  2. ENTRESTO [Suspect]
     Active Substance: SACUBITRIL\VALSARTAN
     Dosage: 1 DOSAGE FORM, QD
     Route: 048
  3. RIVAROSPIRE [Concomitant]
     Indication: Anticoagulant therapy
     Dosage: 1 DOSAGE FORM, QD
     Route: 048
  4. TORSEMIDE [Concomitant]
     Active Substance: TORSEMIDE
     Indication: Fluid retention
     Dosage: 1 DOSAGE FORM, QD (ON EMPTY STOMACH) (FOR WATER AS PER REPORTER^S WORDS)
     Route: 048
  5. RABEPRAZOLE SODIUM [Concomitant]
     Active Substance: RABEPRAZOLE SODIUM
     Indication: Prophylaxis
     Dosage: 1 DOSAGE FORM, QD (BEFORE BREAK FAST)
     Route: 048
  6. SPECTONE [Concomitant]
     Indication: Fluid retention
     Dosage: 1 DOSAGE FORM, QD (FOR WATER AS PER REPORTER^S WORDS)
     Route: 048
  7. SPASCOLON [Concomitant]
     Indication: Functional gastrointestinal disorder
     Dosage: 1 DOSAGE FORM, BID
     Route: 048
  8. LACTOFERRIN [Concomitant]
     Active Substance: LACTOFERRIN
     Indication: Anaemia
     Dosage: ONE SACHET DAILY QD
     Route: 065
  9. GAST-REG [Concomitant]
     Indication: Functional gastrointestinal disorder
     Dosage: 1 DOSAGE FORM, BID
     Route: 048
  10. CARVEDILOL [Concomitant]
     Active Substance: CARVEDILOL
     Indication: Hypertension
     Dosage: 1 DOSAGE FORM
     Route: 048

REACTIONS (8)
  - Hypertension [Not Recovered/Not Resolved]
  - Anaemia [Unknown]
  - Neuritis [Recovering/Resolving]
  - Hypoaesthesia [Recovering/Resolving]
  - Product dispensing issue [Not Recovered/Not Resolved]
  - Inappropriate schedule of product administration [Recovered/Resolved]
  - Underdose [Unknown]
  - Wrong technique in product usage process [Unknown]

NARRATIVE: CASE EVENT DATE: 20191124
